FAERS Safety Report 18542469 (Version 1)
Quarter: 2020Q4

REPORT INFORMATION
  Report Type: Other
  Country: CA (occurrence: CA)
  Receive Date: 20201125
  Receipt Date: 20201125
  Transmission Date: 20210114
  Serious: Yes (Other)
  Sender: FDA-Public Use
  Company Number: CA-CELLTRION INC.-2020CA032001

PATIENT

DRUGS (8)
  1. CALCIUM [Concomitant]
     Active Substance: CALCIUM
  2. IBUPROFEN. [Concomitant]
     Active Substance: IBUPROFEN
  3. PANTOPRAZOLE [Concomitant]
     Active Substance: PANTOPRAZOLE
  4. CLARITIN [Concomitant]
     Active Substance: LORATADINE
  5. RITUXIMAB (UNKNOWN) [Suspect]
     Active Substance: RITUXIMAB
     Indication: RHEUMATOID ARTHRITIS
     Dosage: 1000 MG, 1 EVERY 15 DAYS
     Route: 042
  6. ORENCIA [Concomitant]
     Active Substance: ABATACEPT
     Route: 042
  7. TYLENOL [Concomitant]
     Active Substance: ACETAMINOPHEN
  8. AZATHIOPRINE. [Concomitant]
     Active Substance: AZATHIOPRINE

REACTIONS (2)
  - Depression [Unknown]
  - Off label use [Unknown]
